FAERS Safety Report 21461601 (Version 2)
Quarter: 2023Q1

REPORT INFORMATION
  Report Type: Spontaneous
  Country: BR (occurrence: BR)
  Receive Date: 20221015
  Receipt Date: 20230110
  Transmission Date: 20230417
  Serious: Yes (Disabling, Other)
  Sender: FDA-Public Use
  Company Number: BR-CELLTRION INC.-2022BR016429

PATIENT

DRUGS (7)
  1. INFLIXIMAB [Suspect]
     Active Substance: INFLIXIMAB
     Indication: Ankylosing spondylitis
     Dosage: 5 AMPOULES EVERY 6 WEEKS
     Route: 042
     Dates: start: 20220726
  2. DULOXETINE [Concomitant]
     Active Substance: DULOXETINE
     Indication: Pain
     Dosage: UNK UNK, QD
     Route: 048
     Dates: start: 2007
  3. PREGABALIN [Concomitant]
     Active Substance: PREGABALIN
     Indication: Fibromyalgia
     Dosage: UNK UNK, QD
     Route: 048
     Dates: start: 2007
  4. ALPRAZOLAM [Concomitant]
     Active Substance: ALPRAZOLAM
     Indication: Depression
     Dosage: UNK UNK, QD
     Route: 048
     Dates: start: 2017
  5. RIVOTRIL [Concomitant]
     Active Substance: CLONAZEPAM
     Indication: Depression
     Dosage: 20 DROPS THRICE A  DAY
     Route: 048
     Dates: start: 2017
  6. CITALOPRAM [Concomitant]
     Active Substance: CITALOPRAM HYDROBROMIDE
     Indication: Depression
     Dosage: THRICE A DAY
     Route: 048
     Dates: start: 2017
  7. LATUDA [Concomitant]
     Active Substance: LURASIDONE HYDROCHLORIDE
     Indication: Depression
     Dosage: 1 PILL PER DAY
     Route: 048
     Dates: start: 2017

REACTIONS (13)
  - Bedridden [Unknown]
  - Loss of personal independence in daily activities [Unknown]
  - Immunosuppression [Unknown]
  - Spinal disorder [Unknown]
  - Peripheral swelling [Unknown]
  - Pain in extremity [Unknown]
  - Back pain [Unknown]
  - Arthralgia [Unknown]
  - Hypoaesthesia [Unknown]
  - Gait disturbance [Unknown]
  - Pain [Unknown]
  - Condition aggravated [Unknown]
  - Intentional dose omission [Unknown]
